FAERS Safety Report 7239900-6 (Version None)
Quarter: 2011Q1

REPORT INFORMATION
  Report Type: 
  Country: None (occurrence: None)
  Receive Date: 20110123
  Receipt Date: 20100420
  Transmission Date: 20110831
  Serious: No
  Sender: FDA-Public Use
  Company Number: US-MYLANLABS-2010S1006917

PATIENT
  Age: 59 Year
  Sex: Male
  Weight: 72.58 kg

DRUGS (1)
  1. KETOCONAZOLE [Suspect]
     Indication: ONYCHOMYCOSIS
     Route: 048
     Dates: start: 20100405, end: 20100412

REACTIONS (4)
  - PHOTOPSIA [None]
  - VITREOUS FLOATERS [None]
  - VISUAL IMPAIRMENT [None]
  - VITREOUS DETACHMENT [None]
